FAERS Safety Report 13656701 (Version 2)
Quarter: 2017Q2

REPORT INFORMATION
  Report Type: Spontaneous
  Country: PT (occurrence: PT)
  Receive Date: 20170615
  Receipt Date: 20170620
  Transmission Date: 20170830
  Serious: Yes (Hospitalization, Other)
  Sender: FDA-Public Use
  Company Number: DE-ASTRAZENECA-2017SE62054

PATIENT
  Age: 86 Year
  Sex: Female

DRUGS (5)
  1. SELEGILINE [Concomitant]
     Active Substance: SELEGILINE
  2. OMEPRAZOLE. [Suspect]
     Active Substance: OMEPRAZOLE
     Indication: GASTROINTESTINAL NECROSIS
     Route: 048
  3. BIPERIDEN [Concomitant]
     Active Substance: BIPERIDEN
  4. MELPERONE [Concomitant]
     Active Substance: MELPERONE
  5. ACETYLSALICYLIC ACID [Suspect]
     Active Substance: ASPIRIN
     Dosage: 500.0MG UNKNOWN
     Route: 065

REACTIONS (8)
  - Acute kidney injury [Unknown]
  - Normochromic normocytic anaemia [Unknown]
  - Dehydration [Unknown]
  - Off label use [Unknown]
  - Hyperglycaemia [Unknown]
  - Oesophageal ulcer [Unknown]
  - Gastrointestinal necrosis [Recovering/Resolving]
  - Drug ineffective [Unknown]
